FAERS Safety Report 5027995-X (Version None)
Quarter: 2006Q2

REPORT INFORMATION
  Report Type: 
  Country: None (occurrence: None)
  Receive Date: 20060612
  Receipt Date: 20060530
  Transmission Date: 20061013
  Serious: Yes (Hospitalization, Other)
  Sender: FDA-Public Use
  Company Number: HQWYE576631MAY06

PATIENT
  Age: 19 Year
  Sex: Female

DRUGS (1)
  1. NEOVLAR                              (LEVONORGESTREL/ETHINYL ESTRADIOL [Suspect]
     Indication: ORAL CONTRACEPTION
     Dosage: 1 TABLET 1X PER 1 DAY
     Route: 048
     Dates: start: 20020501, end: 20060515

REACTIONS (1)
  - ABDOMINAL HERNIA [None]
